FAERS Safety Report 24236816 (Version 4)
Quarter: 2024Q4

REPORT INFORMATION
  Report Type: Report from Study
  Country: DE (occurrence: DE)
  Receive Date: 20240822
  Receipt Date: 20241209
  Transmission Date: 20250115
  Serious: Yes (Hospitalization)
  Sender: CSL BEHRING
  Company Number: DE-BEH-2024177428

PATIENT
  Sex: Male
  Weight: 115 kg

DRUGS (13)
  1. PRIVIGEN [Suspect]
     Active Substance: HUMAN IMMUNOGLOBULIN G
     Indication: Chronic lymphocytic leukaemia
     Dosage: 20 G, TOT
     Route: 042
     Dates: start: 20240606
  2. PRIVIGEN [Suspect]
     Active Substance: HUMAN IMMUNOGLOBULIN G
     Dosage: 20 G, TOT
     Route: 042
     Dates: start: 20240704
  3. PRIVIGEN [Suspect]
     Active Substance: HUMAN IMMUNOGLOBULIN G
     Dosage: 20 G, TOT
     Route: 042
     Dates: start: 20240801
  4. BISOPROLOL [Concomitant]
     Active Substance: BISOPROLOL
  5. ENTOCORT [Concomitant]
     Active Substance: BUDESONIDE
  6. LOPERAMIDE [Concomitant]
     Active Substance: LOPERAMIDE
     Dosage: UNK, PRN
     Dates: start: 20240624
  7. ALLOPURINOL [Concomitant]
     Active Substance: ALLOPURINOL
  8. CODEINE [Concomitant]
     Active Substance: CODEINE
  9. ZOMETA [Concomitant]
     Active Substance: ZOLEDRONIC ACID
     Dosage: UNK
     Dates: start: 20240627
  10. BENDAMUSTINE [Concomitant]
     Active Substance: BENDAMUSTINE
     Dosage: UNK
     Dates: start: 20240722
  11. PAXLOVID [Concomitant]
     Active Substance: NIRMATRELVIR\RITONAVIR
     Dosage: UNK
     Dates: start: 20240708, end: 20240713
  12. VENETOCLAX [Concomitant]
     Active Substance: VENETOCLAX
     Dosage: UNK
     Dates: end: 20240717
  13. PIRTOBRUTINIB [Concomitant]
     Active Substance: PIRTOBRUTINIB
     Dosage: UNK
     Dates: end: 20240617

REACTIONS (7)
  - Chronic lymphocytic leukaemia [Fatal]
  - Non-Hodgkin^s lymphoma [Unknown]
  - General physical health deterioration [Unknown]
  - Vision blurred [Unknown]
  - Back pain [Unknown]
  - Pain [Unknown]
  - Confusional state [Unknown]
